FAERS Safety Report 7142289-4 (Version None)
Quarter: 2010Q4

REPORT INFORMATION
  Report Type: 
  Country: None (occurrence: None)
  Receive Date: 20101207
  Receipt Date: 20101124
  Transmission Date: 20110411
  Serious: No
  Sender: FDA-Public Use
  Company Number: US-PFIZER INC-2010157300

PATIENT
  Sex: Female
  Weight: 44 kg

DRUGS (3)
  1. PREMARIN [Suspect]
     Indication: PROPHYLAXIS
     Dosage: UNK, WEEKLY
     Route: 061
     Dates: start: 20090501, end: 20101115
  2. ZOCOR [Concomitant]
     Dosage: UNK
  3. OMEPRAZOLE [Concomitant]
     Dosage: UNK

REACTIONS (1)
  - APPLICATION SITE PAIN [None]
